FAERS Safety Report 8841114 (Version 1)
Quarter: 2012Q4

REPORT INFORMATION
  Report Type: 
  Country: DE (occurrence: DE)
  Receive Date: 20121015
  Receipt Date: 20121015
  Transmission Date: 20130627
  Serious: Yes (Other)
  Sender: FDA-Public Use
  Company Number: DE-MYLANLABS-2012S1020482

PATIENT
  Age: 30 Year
  Sex: Female
  Weight: 108 kg

DRUGS (4)
  1. LAMICTAL [Suspect]
     Indication: EPILEPSY
     Dosage: 600 [mg/d (300-0-300) ]
     Route: 048
     Dates: start: 20100225, end: 20101029
  2. KEPPRA [Suspect]
     Indication: EPILEPSY
     Dosage: 3000 [mg/d (1500-0-1500) ]
     Route: 048
     Dates: start: 20100225, end: 20101029
  3. CLOZAPINE [Suspect]
     Indication: SCHIZOPHRENIA
     Dosage: 500 [mg/d (100-0-200-200) ]
     Route: 048
     Dates: start: 20100225, end: 20101029
  4. NASIVIN [Concomitant]
     Indication: NASOPHARYNGITIS
     Dosage: GW 34.1 -34.2
     Route: 045

REACTIONS (5)
  - Polyhydramnios [Recovered/Resolved]
  - Foetal growth restriction [Recovered/Resolved]
  - Foetal distress syndrome [Recovered/Resolved]
  - Exposure during pregnancy [Recovered/Resolved]
  - Nasopharyngitis [Recovered/Resolved]
